FAERS Safety Report 10313680 (Version 2)
Quarter: 2014Q3

REPORT INFORMATION
  Report Type: Spontaneous
  Country: IT (occurrence: IT)
  Receive Date: 20140718
  Receipt Date: 20140805
  Transmission Date: 20150326
  Serious: Yes (Hospitalization)
  Sender: FDA-Public Use
  Company Number: IT-JNJFOC-20140710461

PATIENT
  Age: 88 Year
  Sex: Female

DRUGS (3)
  1. PALEXIA [Suspect]
     Active Substance: TAPENTADOL HYDROCHLORIDE
     Indication: FRACTURE PAIN
     Dosage: CUMULATIVE DOSE TO THE FIRST REACTION WAS 1400 MG
     Route: 048
     Dates: start: 20140530, end: 20140620
  2. IRBESARTAN. [Concomitant]
     Active Substance: IRBESARTAN
     Indication: CARDIAC VALVE DISEASE
     Dosage: CUMULATIVE DOSE TO FIRST REACTION 37200 MG
     Route: 048
     Dates: start: 20131001, end: 20140704
  3. BISOPROLOL FUMARATE. [Concomitant]
     Active Substance: BISOPROLOL FUMARATE
     Indication: CARDIAC VALVE DISEASE
     Dosage: CUMULATIVE DOSE TO FIRST REACTION WAS 310 MG
     Route: 048
     Dates: start: 20131001, end: 20140704

REACTIONS (2)
  - Cognitive disorder [Recovering/Resolving]
  - Hyponatraemia [Recovering/Resolving]

NARRATIVE: CASE EVENT DATE: 20140605
